FAERS Safety Report 19945266 (Version 1)
Quarter: 2021Q4

REPORT INFORMATION
  Report Type: Spontaneous
  Country: PL (occurrence: PL)
  Receive Date: 20211012
  Receipt Date: 20211012
  Transmission Date: 20220303
  Serious: Yes (Life-Threatening, Other)
  Sender: FDA-Public Use
  Company Number: None

PATIENT
  Age: 63 Year
  Sex: Male
  Weight: 88 kg

DRUGS (2)
  1. OXALIPLATIN [Suspect]
     Active Substance: OXALIPLATIN
     Indication: Colon cancer
     Dosage: 260 MG
     Route: 042
     Dates: start: 20210601, end: 20210601
  2. CAPECITABINE [Suspect]
     Active Substance: CAPECITABINE
     Indication: Colon cancer
     Dosage: 1800 MG
     Route: 048
     Dates: start: 20210601, end: 20210614

REACTIONS (3)
  - Hyperkalaemia [Unknown]
  - Renal failure [Unknown]
  - Asthenia [Unknown]

NARRATIVE: CASE EVENT DATE: 20210622
